FAERS Safety Report 19104685 (Version 1)
Quarter: 2021Q2

REPORT INFORMATION
  Report Type: Other
  Country: US (occurrence: US)
  Receive Date: 20210408
  Receipt Date: 20210408
  Transmission Date: 20210717
  Serious: Yes (Other)
  Sender: FDA-Public Use
  Company Number: US-ROCHE-2788375

PATIENT
  Sex: Male

DRUGS (10)
  1. ZELBORAF [Suspect]
     Active Substance: VEMURAFENIB
     Indication: TYPE 2 DIABETES MELLITUS
  2. LUCENTIS [Suspect]
     Active Substance: RANIBIZUMAB
     Indication: TYPE 2 DIABETES MELLITUS
  3. LUCENTIS [Suspect]
     Active Substance: RANIBIZUMAB
  4. COTELLIC [Suspect]
     Active Substance: COBIMETINIB
     Indication: MALIGNANT MELANOMA
     Dosage: TAKE 3 TABLETS BY MOUTH EVERY DAY DAY 1?21 EVERY 2
     Route: 048
  5. LUCENTIS [Suspect]
     Active Substance: RANIBIZUMAB
  6. ZELBORAF [Suspect]
     Active Substance: VEMURAFENIB
     Indication: MALIGNANT MELANOMA
     Dosage: TAKE 4 TABLETS (960 MG) BY MOUTH EVERY 12 HOURS
     Route: 048
  7. LUCENTIS [Suspect]
     Active Substance: RANIBIZUMAB
  8. COTELLIC [Suspect]
     Active Substance: COBIMETINIB
     Indication: TYPE 2 DIABETES MELLITUS
  9. LUCENTIS [Suspect]
     Active Substance: RANIBIZUMAB
     Indication: MALIGNANT MELANOMA
     Route: 050
  10. LUCENTIS [Suspect]
     Active Substance: RANIBIZUMAB

REACTIONS (3)
  - Renal function test abnormal [Unknown]
  - Enzyme level increased [Unknown]
  - Renal failure [Unknown]
